FAERS Safety Report 5404697-9 (Version None)
Quarter: 2007Q3

REPORT INFORMATION
  Report Type: 
  Country: None (occurrence: None)
  Receive Date: 20070731
  Receipt Date: 20070717
  Transmission Date: 20080115
  Serious: Yes (Death)
  Sender: FDA-Public Use
  Company Number: 17051

PATIENT
  Age: 72 Year
  Sex: Male

DRUGS (2)
  1. CYTARABINE [Suspect]
     Indication: ACUTE MYELOID LEUKAEMIA
     Dosage: 20 MG BID SC
     Route: 058
     Dates: start: 20070220, end: 20070329
  2. ZARNESTRA [Suspect]
     Dosage: 300 MG FREQ UNK PO
     Route: 048

REACTIONS (6)
  - ACUTE MYELOID LEUKAEMIA [None]
  - DRUG RESISTANCE [None]
  - FEBRILE NEUTROPENIA [None]
  - MALIGNANT NEOPLASM PROGRESSION [None]
  - PRODUCTIVE COUGH [None]
  - RESPIRATORY TRACT INFECTION FUNGAL [None]
